FAERS Safety Report 12074739 (Version 2)
Quarter: 2016Q1

REPORT INFORMATION
  Report Type: Other
  Country: US (occurrence: US)
  Receive Date: 20160212
  Receipt Date: 20160324
  Transmission Date: 20160526
  Serious: No
  Sender: FDA-Public Use
  Company Number: US-SHIRE-US201601302

PATIENT
  Age: 62 Year
  Sex: Female

DRUGS (1)
  1. GATTEX [Suspect]
     Active Substance: TEDUGLUTIDE\WATER
     Indication: SHORT-BOWEL SYNDROME
     Dosage: .26 MG, 1X/DAY:QD
     Route: 058
     Dates: start: 20140101

REACTIONS (3)
  - Dizziness [Recovered/Resolved]
  - Tooth fracture [Not Recovered/Not Resolved]
  - Gingival pain [Not Recovered/Not Resolved]

NARRATIVE: CASE EVENT DATE: 20160126
